FAERS Safety Report 19440349 (Version 3)
Quarter: 2024Q2

REPORT INFORMATION
  Report Type: Report from Study
  Country: US (occurrence: US)
  Receive Date: 20210621
  Receipt Date: 20240429
  Transmission Date: 20240716
  Serious: Yes (Other)
  Sender: FDA-Public Use
  Company Number: US-AMGEN-USASL2021091988

PATIENT
  Age: 68 Year
  Sex: Female

DRUGS (2)
  1. ENBREL [Suspect]
     Active Substance: BENZYL ALCOHOL\ETANERCEPT
     Indication: Rheumatoid arthritis
     Dosage: 50 MILLIGRAM, QWK
     Route: 065
     Dates: start: 2007, end: 202105
  2. ENBREL [Suspect]
     Active Substance: BENZYL ALCOHOL\ETANERCEPT
     Dosage: 50 MILLIGRAM, QWK
     Route: 065

REACTIONS (5)
  - Breast cancer [Unknown]
  - Osteoarthritis [Unknown]
  - Osteopenia [Unknown]
  - Device use error [Unknown]
  - Drug dose omission by device [Unknown]

NARRATIVE: CASE EVENT DATE: 20210501
